FAERS Safety Report 8368906-9 (Version None)
Quarter: 2012Q2

REPORT INFORMATION
  Report Type: 
  Country: None (occurrence: None)
  Receive Date: 20120516
  Receipt Date: 20120509
  Transmission Date: 20120825
  Serious: Yes (Other)
  Sender: FDA-Public Use
  Company Number: USA/USA/12/0024273

PATIENT
  Age: 53 Year
  Sex: Female
  Weight: 52.1637 kg

DRUGS (5)
  1. AMOXICILLIN AND CLAVULANATE POTASSIUM [Suspect]
     Indication: UPPER RESPIRATORY TRACT INFECTION
     Dosage: 1000 MG, 2 IN 1 D, ORAL
     Route: 048
     Dates: start: 20120507
  2. BACLOFEN [Concomitant]
  3. VALIUM [Concomitant]
  4. PERCOCET [Concomitant]
  5. GEMFIBROZIL [Concomitant]

REACTIONS (2)
  - CONDITION AGGRAVATED [None]
  - CYSTITIS INTERSTITIAL [None]
